FAERS Safety Report 8849896 (Version 1)
Quarter: 2012Q4

REPORT INFORMATION
  Report Type: Report from Study
  Country: BE (occurrence: BE)
  Receive Date: 20121019
  Receipt Date: 20121019
  Transmission Date: 20130627
  Serious: Yes (Hospitalization, Other)
  Sender: FDA-Public Use
  Company Number: BE-ROCHE-1134978

PATIENT
  Age: 71 Year
  Sex: Male

DRUGS (8)
  1. 5-FLUOROURACIL [Suspect]
     Indication: NON-SMALL CELL LUNG CANCER
     Route: 065
  2. BEVACIZUMAB [Suspect]
     Indication: NON-SMALL CELL LUNG CANCER
     Route: 065
  3. FOLINIC ACID [Suspect]
     Indication: NON-SMALL CELL LUNG CANCER
     Route: 065
  4. IRINOTECAN [Suspect]
     Indication: NON-SMALL CELL LUNG CANCER
     Route: 065
  5. APROVEL [Concomitant]
     Indication: HYPERTENSION
     Route: 048
  6. MOXONIDINE [Concomitant]
     Indication: HYPERTENSION
     Route: 048
  7. SERETIDE [Concomitant]
     Indication: CHRONIC OBSTRUCTIVE PULMONARY DISEASE
     Dosage: 25/250 mcg
     Route: 055
  8. SPIRIVA [Concomitant]
     Indication: CHRONIC OBSTRUCTIVE PULMONARY DISEASE
     Route: 055

REACTIONS (6)
  - Pyrexia [Unknown]
  - Diarrhoea [Unknown]
  - Septic shock [Recovering/Resolving]
  - Neutropenia [Unknown]
  - Renal failure acute [Unknown]
  - Urinary tract infection [Recovering/Resolving]
